FAERS Safety Report 5225643-7 (Version None)
Quarter: 2006Q4

REPORT INFORMATION
  Report Type: 
  Country: None (occurrence: None)
  Receive Date: 20061201
  Receipt Date: 20061107
  Transmission Date: 20070319
  Serious: Yes (Death)
  Sender: FDA-Public Use
  Company Number: US200610003326

PATIENT
  Age: 50 Year
  Sex: Female
  Weight: 90.7 kg

DRUGS (3)
  1. CYMBALTA [Suspect]
     Indication: DEPRESSION
     Dosage: 90 MG, DAILY (1/D) ORAL
     Route: 048
     Dates: start: 20051201
  2. SEROQUEL [Concomitant]
  3. CLONAZEPAM [Concomitant]

REACTIONS (1)
  - COMPLETED SUICIDE [None]
